FAERS Safety Report 22353484 (Version 2)
Quarter: 2023Q2

REPORT INFORMATION
  Report Type: Report from Study
  Country: CA (occurrence: CA)
  Receive Date: 20230523
  Receipt Date: 20230612
  Transmission Date: 20230721
  Serious: Yes (Other)
  Sender: FDA-Public Use
  Company Number: CA-002147023-NVSC2023CA116037

PATIENT
  Sex: Female

DRUGS (2)
  1. ROSUVASTATIN [Suspect]
     Active Substance: ROSUVASTATIN
     Indication: Arteriosclerosis
     Dosage: 40 MG
     Route: 058
  2. EZETIMIBE [Suspect]
     Active Substance: EZETIMIBE
     Indication: Product used for unknown indication
     Dosage: 10 MG
     Route: 065

REACTIONS (3)
  - Myocardial infarction [Unknown]
  - Arteriosclerosis [Unknown]
  - Low density lipoprotein decreased [Unknown]

NARRATIVE: CASE EVENT DATE: 20230201
